FAERS Safety Report 5255429-9 (Version None)
Quarter: 2007Q1

REPORT INFORMATION
  Report Type: 
  Country: None (occurrence: None)
  Receive Date: 20070305
  Receipt Date: 20070220
  Transmission Date: 20070707
  Serious: Yes (Other)
  Sender: FDA-Public Use
  Company Number: PHBS2007CH03429

PATIENT
  Age: 36 Year
  Sex: Male
  Weight: 102 kg

DRUGS (2)
  1. GLEEVEC [Suspect]
     Dosage: 400 MG/DAY
     Dates: start: 20060518
  2. ALLOPURINOL [Concomitant]
     Dosage: 300 MG/DAY
     Dates: start: 20060501, end: 20060501

REACTIONS (5)
  - ARTHRALGIA [None]
  - CHONDROPATHY [None]
  - MENISCUS LESION [None]
  - MUSCLE SPASMS [None]
  - MYALGIA [None]
